FAERS Safety Report 8960657 (Version 2)
Quarter: 2013Q1

REPORT INFORMATION
  Report Type: Spontaneous
  Country: US (occurrence: US)
  Receive Date: 20121213
  Receipt Date: 20130124
  Transmission Date: 20140127
  Serious: Yes (Hospitalization, Disabling, Other)
  Sender: FDA-Public Use
  Company Number: US-009507513-2011SP057738

PATIENT
  Sex: 0

DRUGS (1)
  1. NUVARING [Suspect]
     Indication: CONTRACEPTION
     Dosage: DF, QM
     Route: 067
     Dates: start: 20091016, end: 201001

REACTIONS (23)
  - Rhabdomyolysis [Unknown]
  - Pulmonary embolism [Not Recovered/Not Resolved]
  - Cholecystectomy [Unknown]
  - Nephrolithiasis [Unknown]
  - Hypothyroidism [Unknown]
  - Pelvic inflammatory disease [Unknown]
  - Hyperhomocysteinaemia [Unknown]
  - Nodule [Unknown]
  - Dyspnoea [Unknown]
  - Antiphospholipid antibodies positive [Unknown]
  - Headache [Unknown]
  - Pain in extremity [Unknown]
  - Pleuritic pain [Unknown]
  - Polycystic ovaries [Unknown]
  - Hyperlipidaemia [Unknown]
  - Hirsutism [Unknown]
  - Blood thyroid stimulating hormone increased [Unknown]
  - Urinary tract infection [Unknown]
  - Spinal osteoarthritis [Unknown]
  - Abdominal discomfort [Unknown]
  - Abdominal discomfort [Unknown]
  - Drug hypersensitivity [Unknown]
  - Drug hypersensitivity [Unknown]
